FAERS Safety Report 20634946 (Version 1)
Quarter: 2022Q1

REPORT INFORMATION
  Report Type: Other
  Country: AE (occurrence: None)
  Receive Date: 20220325
  Receipt Date: 20220325
  Transmission Date: 20220423
  Serious: Yes (Other)
  Sender: FDA-Public Use
  Company Number: AE-ROCHE-3057874

PATIENT
  Age: 35 Year
  Sex: Female

DRUGS (2)
  1. HERCEPTIN [Suspect]
     Active Substance: TRASTUZUMAB
     Indication: Breast cancer metastatic
     Route: 065
     Dates: start: 2019, end: 20211027
  2. PERJETA [Suspect]
     Active Substance: PERTUZUMAB
     Indication: Breast cancer metastatic
     Route: 065

REACTIONS (11)
  - Mastectomy [Unknown]
  - Dyspnoea [Unknown]
  - Cough [Unknown]
  - Eyelid ptosis [Unknown]
  - Enophthalmos [Unknown]
  - Pulmonary mass [Unknown]
  - Pleural effusion [Unknown]
  - Liver disorder [Unknown]
  - Lymphadenopathy mediastinal [Unknown]
  - Lymphadenopathy [Unknown]
  - Skin mass [Unknown]

NARRATIVE: CASE EVENT DATE: 20190426
